FAERS Safety Report 9812988 (Version 1)
Quarter: 2014Q1

REPORT INFORMATION
  Report Type: Spontaneous
  Country: CN (occurrence: None)
  Receive Date: 20140108
  Receipt Date: 20140108
  Transmission Date: 20141002
  Serious: Yes (Hospitalization)
  Sender: FDA-Public Use
  Company Number: CN-ALKEM-000451

PATIENT
  Age: 86 Year
  Sex: Female

DRUGS (3)
  1. METFORMIN (METFORMIN) [Suspect]
     Indication: TYPE 2 DIABETES MELLITUS
     Dosage: 1.00 G-3.00 TIMES PER-1.0 DAYS
  2. POLYETHYLENE GLYCOL [Suspect]
     Indication: BOWEL PREPARATION
     Dosage: 1.00 -G- 3.00 TIMES PER-1.0 DAYS
  3. GLICLAZIDE (GLICLAZIDE) [Concomitant]

REACTIONS (8)
  - Lactic acidosis [None]
  - Dehydration [None]
  - Renal failure acute [None]
  - Dizziness [None]
  - Vomiting [None]
  - Haemodialysis [None]
  - Klebsiella infection [None]
  - Urinary tract infection [None]
